FAERS Safety Report 23703832 (Version 2)
Quarter: 2024Q3

REPORT INFORMATION
  Report Type: Spontaneous
  Country: US (occurrence: US)
  Receive Date: 20240403
  Receipt Date: 20240930
  Transmission Date: 20241016
  Serious: No
  Sender: PFIZER
  Company Number: US-PFIZER INC-PV202400043180

PATIENT
  Age: 53 Year
  Sex: Female

DRUGS (2)
  1. CIBINQO [Suspect]
     Active Substance: ABROCITINIB
     Dosage: 50 MG
  2. CIBINQO [Suspect]
     Active Substance: ABROCITINIB
     Dosage: STRENGTH: 100 MG

REACTIONS (3)
  - Blood blister [Unknown]
  - Illness [Unknown]
  - Product prescribing issue [Unknown]
